FAERS Safety Report 5128852-0 (Version None)
Quarter: 2006Q4

REPORT INFORMATION
  Report Type: 
  Country: None (occurrence: None)
  Receive Date: 20061011
  Receipt Date: 20060928
  Transmission Date: 20070319
  Serious: Yes (Death, Hospitalization)
  Sender: FDA-Public Use
  Company Number: 2006122158

PATIENT

DRUGS (2)
  1. CELEBREX [Suspect]
     Dates: start: 19990101, end: 20020503
  2. VIOXX [Suspect]
     Dates: start: 19990501, end: 20020503

REACTIONS (2)
  - MYOCARDIAL INFARCTION [None]
  - THROMBOSIS [None]
